FAERS Safety Report 6258940-7 (Version None)
Quarter: 2009Q3

REPORT INFORMATION
  Report Type: 
  Country: None (occurrence: None)
  Receive Date: 20090702
  Receipt Date: 20090624
  Transmission Date: 20100115
  Serious: Yes (Hospitalization)
  Sender: FDA-Public Use
  Company Number: 236533K09USA

PATIENT
  Age: 53 Year
  Sex: Female
  Weight: 61 kg

DRUGS (11)
  1. REBIF [Suspect]
     Indication: MULTIPLE SCLEROSIS
     Dosage: 44 MCG, 3 IN 1 WEEKS, SUBCUTANEOUS
     Route: 058
     Dates: start: 20040705
  2. DEPO-PROVERA [Suspect]
  3. PROVIGIL [Concomitant]
  4. ATENOLOL [Concomitant]
  5. DIOVAN [Concomitant]
  6. IRON SUPPLEMENT (IRON) [Concomitant]
  7. ZOLOFT [Concomitant]
  8. NEURONTIN [Concomitant]
  9. CRESTOR [Concomitant]
  10. SYNTHROID [Concomitant]
  11. INSULIN [Concomitant]

REACTIONS (5)
  - BONE DISORDER [None]
  - EATING DISORDER [None]
  - MENINGIOMA [None]
  - NAUSEA [None]
  - POST PROCEDURAL INFECTION [None]
